FAERS Safety Report 6539549-4 (Version None)
Quarter: 2010Q1

REPORT INFORMATION
  Report Type: 
  Country: None (occurrence: None)
  Receive Date: 20100115
  Receipt Date: 20100108
  Transmission Date: 20100710
  Serious: Yes (Hospitalization)
  Sender: FDA-Public Use
  Company Number: B0624341A

PATIENT
  Sex: Female

DRUGS (4)
  1. AUGMENTIN [Suspect]
     Route: 065
     Dates: start: 20090701, end: 20090701
  2. BRONCHOKOD [Suspect]
     Route: 065
     Dates: start: 20090701, end: 20090701
  3. HEXALYSE [Suspect]
     Route: 065
     Dates: start: 20090701, end: 20090701
  4. TAVANIC [Suspect]
     Route: 065
     Dates: start: 20090701, end: 20090701

REACTIONS (3)
  - OFF LABEL USE [None]
  - RASH MACULO-PAPULAR [None]
  - TOXIC SKIN ERUPTION [None]
